FAERS Safety Report 23117807 (Version 1)
Quarter: 2023Q4

REPORT INFORMATION
  Report Type: Spontaneous
  Country: GB (occurrence: GB)
  Receive Date: 20231027
  Receipt Date: 20231027
  Transmission Date: 20240110
  Serious: Yes (Other)
  Sender: FDA-Public Use
  Company Number: GB-MLMSERVICE-20200219-2177033-1

PATIENT
  Age: 70 Year
  Sex: Male

DRUGS (7)
  1. DORZOLAMIDE AND TIMOLOL [Suspect]
     Active Substance: DORZOLAMIDE HYDROCHLORIDE\TIMOLOL MALEATE
     Indication: Ocular hypertension
     Dosage: PRESERVED EYE DROPS
     Route: 061
  2. LATANOPROST [Suspect]
     Active Substance: LATANOPROST
     Indication: Ocular hypertension
     Dosage: PRESERVED EYE DROPS, AT NIGHT
     Route: 061
  3. BRIMONIDINE [Suspect]
     Active Substance: BRIMONIDINE TARTRATE
     Indication: Ocular hypertension
     Dosage: PRESERVED EYE DROPS
     Route: 061
  4. METHYLPREDNISOLONE [Concomitant]
     Active Substance: METHYLPREDNISOLONE
     Indication: Eye disorder
     Route: 042
  5. METHOTREXATE [Concomitant]
     Active Substance: METHOTREXATE
     Indication: Idiopathic orbital inflammation
     Route: 048
  6. FOLIC ACID [Concomitant]
     Active Substance: FOLIC ACID
     Indication: Idiopathic orbital inflammation
  7. ACETAZOLAMIDE [Concomitant]
     Active Substance: ACETAZOLAMIDE
     Indication: Ocular hypertension
     Dosage: SLOW RELEASE
     Route: 048

REACTIONS (3)
  - Punctate keratitis [Recovered/Resolved with Sequelae]
  - Drug intolerance [Recovering/Resolving]
  - Treatment noncompliance [Unknown]
